FAERS Safety Report 5673071-2 (Version None)
Quarter: 2008Q1

REPORT INFORMATION
  Report Type: 
  Country: None (occurrence: None)
  Receive Date: 20080319
  Receipt Date: 20080118
  Transmission Date: 20080703
  Serious: No
  Sender: FDA-Public Use
  Company Number: US-ASTRAZENECA-2008UW01472

PATIENT
  Age: 24990 Day
  Sex: Female
  Weight: 72.6 kg

DRUGS (5)
  1. SYMBICORT [Suspect]
     Dosage: 80/4.5 UG TWO PUFFS BID
     Route: 055
     Dates: start: 20070113
  2. ADVAIR DISKUS 100/50 [Concomitant]
  3. PROAIR HFA [Concomitant]
  4. ALBUTEROL [Concomitant]
  5. PREDNISONE [Concomitant]

REACTIONS (2)
  - INCREASED UPPER AIRWAY SECRETION [None]
  - PHARMACEUTICAL PRODUCT COMPLAINT [None]
